FAERS Safety Report 6513088-9 (Version None)
Quarter: 2009Q4

REPORT INFORMATION
  Report Type: 
  Country: None (occurrence: None)
  Receive Date: 20091222
  Receipt Date: 20091222
  Transmission Date: 20100525
  Serious: No
  Sender: FDA-Public Use
  Company Number: None

PATIENT
  Age: 83 Year
  Sex: Male
  Weight: 93.43 kg

DRUGS (29)
  1. ZYPREXA [Suspect]
     Indication: AGITATION
     Dosage: 5 MG ONE TIME DOSE IM
     Route: 030
     Dates: start: 20091221, end: 20091221
  2. ZYPREXA [Suspect]
     Indication: ANXIETY
     Dosage: 5 MG ONE TIME DOSE IM
     Route: 030
     Dates: start: 20091221, end: 20091221
  3. NS WITH MVI [Concomitant]
  4. FOLIC ACID [Concomitant]
  5. THIAMINE [Concomitant]
  6. METOPROLOL TARTRATE [Concomitant]
  7. LOVENOX [Concomitant]
  8. FAMOTIDINE [Concomitant]
  9. TYLENOL (CAPLET) [Concomitant]
  10. HALDOL [Concomitant]
  11. NICARDIPINE HYDROCHLORIDE [Concomitant]
  12. HUMALOG [Concomitant]
  13. ULTRAM [Concomitant]
  14. INSULIN DETEMIR [Concomitant]
  15. ZOCOR [Concomitant]
  16. CATAPRES [Concomitant]
  17. MYLANTA [Concomitant]
  18. NITROSTAT [Concomitant]
  19. COLACE [Concomitant]
  20. ZOFRAN [Concomitant]
  21. MULTIVIT [Concomitant]
  22. ZOLOFT [Concomitant]
  23. CILOSTAZOL [Concomitant]
  24. PLAVIX [Concomitant]
  25. SITAGLIPTIM [Concomitant]
  26. IMDUR [Concomitant]
  27. AZACTAM [Concomitant]
  28. VANCOMYCIN HCL [Concomitant]
  29. AMBIEN [Concomitant]

REACTIONS (1)
  - RESPIRATORY FAILURE [None]
